FAERS Safety Report 4781654-7 (Version None)
Quarter: 2005Q3

REPORT INFORMATION
  Report Type: 
  Country: None (occurrence: None)
  Receive Date: 20050914
  Receipt Date: 20050415
  Transmission Date: 20060218
  Serious: Yes (Hospitalization)
  Sender: FDA-Public Use
  Company Number: 163-20785-05040348

PATIENT
  Age: 47 Year
  Sex: Male
  Weight: 78.4723 kg

DRUGS (6)
  1. THALOMID [Suspect]
     Indication: COLON CANCER METASTATIC
     Dosage: 100 MG, DAILY, ORAL
     Route: 048
     Dates: start: 20050314
  2. ZYRTEC D (CETIRIZINE HYDROCHLORIDE) [Concomitant]
  3. PAXIL [Concomitant]
  4. DURAGESIC PATCH (FENTANYL) (POULTICE OR PATCH) [Concomitant]
  5. LOMOTIL (LOMOTIL) (TABLETS) [Concomitant]
  6. NEURONTIN (GABAPENTIN) (SOLUTION) [Concomitant]

REACTIONS (4)
  - CENTRAL LINE INFECTION [None]
  - CHILLS [None]
  - SEPSIS [None]
  - STAPHYLOCOCCAL INFECTION [None]
